FAERS Safety Report 12861263 (Version 1)
Quarter: 2016Q4

REPORT INFORMATION
  Report Type: Spontaneous
  Country: US (occurrence: US)
  Receive Date: 20161019
  Receipt Date: 20161019
  Transmission Date: 20170207
  Serious: No
  Sender: FDA-Public Use
  Company Number: US-TEVA-696975ACC

PATIENT
  Sex: Female

DRUGS (1)
  1. PLAN B ONE-STEP [Suspect]
     Active Substance: LEVONORGESTREL
     Indication: POST COITAL CONTRACEPTION
     Dates: start: 201608, end: 201608

REACTIONS (4)
  - Nausea [Not Recovered/Not Resolved]
  - Abdominal pain lower [Unknown]
  - Menstruation irregular [Unknown]
  - Hypomenorrhoea [Recovered/Resolved]
